FAERS Safety Report 4301879-4 (Version None)
Quarter: 2004Q1

REPORT INFORMATION
  Report Type: 
  Country: None (occurrence: None)
  Receive Date: 20040126
  Receipt Date: 20031007
  Transmission Date: 20041129
  Serious: No
  Sender: FDA-Public Use
  Company Number: USA031049289

PATIENT
  Age: 16 Year
  Sex: Female
  Weight: 68 kg

DRUGS (1)
  1. STRATTERA [Suspect]
     Indication: ATTENTION DEFICIT/HYPERACTIVITY DISORDER
     Dosage: 80 MG/DAY

REACTIONS (3)
  - COLD SWEAT [None]
  - DYSPEPSIA [None]
  - MOOD SWINGS [None]
